FAERS Safety Report 13589573 (Version 1)
Quarter: 2017Q2

REPORT INFORMATION
  Report Type: Spontaneous
  Country: FR (occurrence: FR)
  Receive Date: 20170529
  Receipt Date: 20170529
  Transmission Date: 20170830
  Serious: Yes (Hospitalization, Other)
  Sender: FDA-Public Use
  Company Number: FR-ROCHE-1938990

PATIENT
  Age: 85 Year
  Sex: Male

DRUGS (5)
  1. ROACTEMRA [Suspect]
     Active Substance: TOCILIZUMAB
     Dosage: CONCENTRATE FOR SOLUTION FOR INFUSION 20 MG/ML
     Route: 041
     Dates: start: 20170419
  2. ROACTEMRA [Suspect]
     Active Substance: TOCILIZUMAB
     Dosage: CONCENTRATE FOR SOLUTION FOR INFUSION 20 MG/ML
     Route: 041
     Dates: start: 20170222
  3. XATRAL [Concomitant]
     Active Substance: ALFUZOSIN
     Route: 065
  4. ROACTEMRA [Suspect]
     Active Substance: TOCILIZUMAB
     Indication: TEMPORAL ARTERITIS
     Dosage: CONCENTRATE FOR SOLUTION FOR INFUSION 20 MG/ML
     Route: 041
     Dates: start: 20170111
  5. CORTANCYL [Concomitant]
     Active Substance: PREDNISONE
     Route: 065

REACTIONS (3)
  - Pulmonary embolism [Recovered/Resolved]
  - Product use in unapproved indication [Unknown]
  - Off label use [Unknown]

NARRATIVE: CASE EVENT DATE: 20170321
